FAERS Safety Report 10254338 (Version 1)
Quarter: 2014Q2

REPORT INFORMATION
  Report Type: Report from Study
  Country: ZA (occurrence: ZA)
  Receive Date: 20140624
  Receipt Date: 20140624
  Transmission Date: 20141212
  Serious: Yes (Death, Other)
  Sender: FDA-Public Use
  Company Number: ZA-ROCHE-1423017

PATIENT
  Sex: Female

DRUGS (3)
  1. MIRCERA [Suspect]
     Indication: NEPHROGENIC ANAEMIA
     Route: 058
     Dates: start: 201401
  2. MIRCERA [Suspect]
     Route: 058
     Dates: start: 201205
  3. MIRCERA [Suspect]
     Route: 058
     Dates: start: 201305

REACTIONS (2)
  - Death [Fatal]
  - Multi-organ failure [Unknown]
